FAERS Safety Report 26165013 (Version 1)
Quarter: 2025Q4

REPORT INFORMATION
  Report Type: Spontaneous
  Country: US (occurrence: US)
  Receive Date: 20251216
  Receipt Date: 20251216
  Transmission Date: 20260118
  Serious: No
  Sender: PFIZER
  Company Number: US-PFIZER INC-202500239072

PATIENT
  Age: 61 Year
  Sex: Male

DRUGS (1)
  1. CIBINQO [Suspect]
     Active Substance: ABROCITINIB
     Indication: Dermatitis atopic
     Dosage: 100 MG
     Dates: start: 20250930

REACTIONS (3)
  - Therapeutic product effect decreased [Unknown]
  - Condition aggravated [Unknown]
  - Immune system disorder [Unknown]

NARRATIVE: CASE EVENT DATE: 20251204
